FAERS Safety Report 14768525 (Version 3)
Quarter: 2018Q2

REPORT INFORMATION
  Report Type: Spontaneous
  Country: CA (occurrence: CA)
  Receive Date: 20180417
  Receipt Date: 20180619
  Transmission Date: 20180711
  Serious: Yes (Hospitalization, Other)
  Sender: FDA-Public Use
  Company Number: CA-PFIZER INC-2017004127

PATIENT
  Age: 66 Year
  Sex: Female

DRUGS (16)
  1. FOLIC ACID. [Concomitant]
     Active Substance: FOLIC ACID
     Dosage: UNK UNK, DAILY
  2. XELJANZ [Suspect]
     Active Substance: TOFACITINIB CITRATE
     Dosage: 5 MG, 1X/DAY
     Route: 048
  3. XELJANZ [Suspect]
     Active Substance: TOFACITINIB CITRATE
     Dosage: 5 MG, 2X/DAY
     Route: 048
     Dates: end: 20170203
  4. XELJANZ [Suspect]
     Active Substance: TOFACITINIB CITRATE
     Dosage: 5 MG, 2X/DAY
     Route: 048
     Dates: start: 201803, end: 201804
  5. XELJANZ [Suspect]
     Active Substance: TOFACITINIB CITRATE
     Indication: RHEUMATOID ARTHRITIS
     Dosage: 5 MG, 2X/DAY
     Route: 048
     Dates: start: 20161222
  6. NEXIUM [Concomitant]
     Active Substance: ESOMEPRAZOLE MAGNESIUM
     Dosage: 40 MG, DAILY
  7. XELJANZ [Suspect]
     Active Substance: TOFACITINIB CITRATE
     Dosage: 5 MG, 1X/DAY
     Route: 048
     Dates: start: 201803
  8. L-THYROXIN [Concomitant]
     Active Substance: LEVOTHYROXINE SODIUM
  9. IMOVANE [Concomitant]
     Active Substance: ZOPICLONE
     Dosage: UNK UNK, DAILY (Q0020 HS)
  10. ZOLEDRONATE [Concomitant]
     Active Substance: ZOLEDRONIC ACID
     Dosage: 5 MG, UNK
     Route: 042
     Dates: start: 20170418
  11. XELJANZ [Suspect]
     Active Substance: TOFACITINIB CITRATE
     Dosage: 5 MG, 2X/DAY
     Route: 048
     Dates: end: 201703
  12. PREDNISONE. [Concomitant]
     Active Substance: PREDNISONE
     Dosage: 11 MG, DAILY
  13. PREDNISONE. [Concomitant]
     Active Substance: PREDNISONE
     Dosage: 9 MG, DAILY
  14. MICARDIS [Concomitant]
     Active Substance: TELMISARTAN
  15. MORPHINE [Concomitant]
     Active Substance: MORPHINE
  16. FLUCONAZOLE. [Concomitant]
     Active Substance: FLUCONAZOLE
     Indication: OESOPHAGITIS
     Dosage: UNK, AS NEEDED

REACTIONS (12)
  - Infection [Not Recovered/Not Resolved]
  - Headache [Unknown]
  - Influenza [Unknown]
  - General physical health deterioration [Unknown]
  - Oral candidiasis [Unknown]
  - Rash pustular [Not Recovered/Not Resolved]
  - Cystitis [Not Recovered/Not Resolved]
  - Pneumonia [Unknown]
  - Tremor [Not Recovered/Not Resolved]
  - Sinusitis [Unknown]
  - Amnesia [Unknown]
  - Nausea [Recovered/Resolved]
